FAERS Safety Report 5327074-8 (Version None)
Quarter: 2007Q2

REPORT INFORMATION
  Report Type: 
  Country: None (occurrence: None)
  Receive Date: 20070517
  Receipt Date: 20070509
  Transmission Date: 20071010
  Serious: Yes (Other)
  Sender: FDA-Public Use
  Company Number: PHNR2007AU01097

PATIENT
  Sex: Male

DRUGS (1)
  1. LAMISIL [Suspect]

REACTIONS (3)
  - ATRIAL FIBRILLATION [None]
  - ATRIAL HYPERTROPHY [None]
  - DYSPNOEA [None]
